FAERS Safety Report 20240315 (Version 4)
Quarter: 2022Q1

REPORT INFORMATION
  Report Type: Spontaneous
  Country: US (occurrence: US)
  Receive Date: 20211228
  Receipt Date: 20220307
  Transmission Date: 20220423
  Serious: Yes (Other)
  Sender: FDA-Public Use
  Company Number: US-BAYER-2021A274696

PATIENT
  Age: 55 Year
  Sex: Male

DRUGS (3)
  1. KOGENATE FS [Suspect]
     Active Substance: ANTIHEMOPHILIC FACTOR, HUMAN RECOMBINANT
     Dosage: 2500 IU, PRN
     Route: 042
     Dates: start: 20211109, end: 20211109
  2. KOGENATE FS [Suspect]
     Active Substance: ANTIHEMOPHILIC FACTOR, HUMAN RECOMBINANT
     Dosage: INFUSED 1 MAJOR DOSE AND 3 MINOR DOSES
     Route: 042
  3. KOGENATE FS [Suspect]
     Active Substance: ANTIHEMOPHILIC FACTOR, HUMAN RECOMBINANT
     Dosage: UNK, INFUSED 2 MAJOR DOSE AND 2 MINOR DOSES

REACTIONS (10)
  - Seizure [Recovered/Resolved]
  - Seizure [None]
  - Seizure [Recovered/Resolved]
  - Haemarthrosis [Recovered/Resolved]
  - Fall [None]
  - Fall [Recovered/Resolved]
  - Fall [Recovered/Resolved]
  - Joint injury [None]
  - Head injury [None]
  - Back injury [Recovered/Resolved]

NARRATIVE: CASE EVENT DATE: 20211109
